FAERS Safety Report 17022554 (Version 7)
Quarter: 2020Q4

REPORT INFORMATION
  Report Type: Spontaneous
  Country: CN (occurrence: CN)
  Receive Date: 20191112
  Receipt Date: 20201204
  Transmission Date: 20210113
  Serious: Yes (Hospitalization)
  Sender: FDA-Public Use
  Company Number: CN-CELGENEUS-CHN-20191102392

PATIENT
  Age: 67 Year
  Sex: Female
  Weight: 70 kg

DRUGS (13)
  1. INSULIN [Concomitant]
     Active Substance: INSULIN NOS
     Dosage: 4 IU (INTERNATIONAL UNIT)
     Route: 041
     Dates: start: 20191029, end: 20191029
  2. SERPLULIMAB. [Suspect]
     Active Substance: SERPLULIMAB
     Indication: NON-SMALL CELL LUNG CANCER
     Dosage: 300 MILLIGRAM
     Route: 041
     Dates: start: 20191015, end: 20191016
  3. INSULIN [Concomitant]
     Active Substance: INSULIN NOS
     Indication: FLUID REPLACEMENT
     Dosage: 8 IU (INTERNATIONAL UNIT)
     Route: 041
     Dates: start: 20191021, end: 20191022
  4. VITAMIN C [Concomitant]
     Active Substance: ASCORBIC ACID
     Indication: FLUID REPLACEMENT
     Dosage: 2 GRAM
     Route: 041
     Dates: start: 20191021, end: 20191022
  5. METOCLOPRAMIDE DIHYDROCHLORIDE [Concomitant]
     Indication: PROPHYLAXIS OF NAUSEA AND VOMITING
     Dosage: 20 MILLIGRAM
     Route: 030
     Dates: start: 20191021, end: 20191022
  6. CARBOPLATIN. [Suspect]
     Active Substance: CARBOPLATIN
     Indication: NON-SMALL CELL LUNG CANCER
     Dosage: 713 MILLIGRAM
     Route: 041
     Dates: start: 20191015, end: 20191016
  7. SERPLULIMAB. [Suspect]
     Active Substance: SERPLULIMAB
     Dosage: 300 MILLIGRAM
     Route: 058
     Dates: start: 20191028, end: 20191028
  8. VITAMIN C [Concomitant]
     Active Substance: ASCORBIC ACID
     Dosage: 1 GRAM
     Route: 041
     Dates: start: 20191029, end: 20191029
  9. OMEPRAZOLE SODIUM [Concomitant]
     Active Substance: OMEPRAZOLE SODIUM
     Indication: PROPHYLAXIS OF NAUSEA AND VOMITING
     Dosage: 80 MILLIGRAM
     Route: 041
     Dates: start: 20191021, end: 20191022
  10. ABRAXANE [Suspect]
     Active Substance: PACLITAXEL
     Indication: NON-SMALL CELL LUNG CANCER
     Dosage: 170 MILLIGRAM
     Route: 041
     Dates: start: 20191015, end: 20191030
  11. POTASSIUM CHLORIDE. [Concomitant]
     Active Substance: POTASSIUM CHLORIDE
     Indication: FLUID REPLACEMENT
     Dosage: 20 MILLILITER
     Route: 041
     Dates: start: 20191021, end: 20191022
  12. POTASSIUM CHLORIDE. [Concomitant]
     Active Substance: POTASSIUM CHLORIDE
     Dosage: 10 MILLILITER
     Route: 041
     Dates: start: 20191029, end: 20191029
  13. TROPISETRON HYDROCHLORIDE [Concomitant]
     Active Substance: TROPISETRON HYDROCHLORIDE
     Indication: PROPHYLAXIS OF NAUSEA AND VOMITING
     Dosage: 100 MILLILITER
     Route: 041
     Dates: start: 20191021, end: 20191022

REACTIONS (3)
  - Neutrophil count decreased [Recovered/Resolved]
  - White blood cell count decreased [Recovered/Resolved]
  - Platelet count decreased [Recovered/Resolved]

NARRATIVE: CASE EVENT DATE: 20191027
